FAERS Safety Report 22063935 (Version 1)
Quarter: 2023Q1

REPORT INFORMATION
  Report Type: Spontaneous
  Country: US (occurrence: None)
  Receive Date: 20230303
  Receipt Date: 20230303
  Transmission Date: 20230418
  Serious: Yes (Other)
  Sender: FDA-Public Use
  Company Number: None

PATIENT
  Age: 76 Year
  Sex: Female
  Weight: 65.25 kg

DRUGS (9)
  1. PAXLOVID [Suspect]
     Active Substance: NIRMATRELVIR\RITONAVIR
     Indication: COVID-19
     Dosage: FREQUENCY : TWICE A DAY;?
     Route: 048
     Dates: start: 20230302, end: 20230302
  2. LEVOTHYROXINE [Concomitant]
     Active Substance: LEVOTHYROXINE
  3. VENLAFAXINE HYDROCHLORIDE [Concomitant]
     Active Substance: VENLAFAXINE HYDROCHLORIDE
  4. LISINOPRIL [Concomitant]
     Active Substance: LISINOPRIL
  5. SIMVASTATIN [Concomitant]
     Active Substance: SIMVASTATIN
  6. QUETIAPINE [Concomitant]
     Active Substance: QUETIAPINE
  7. MELATONIN [Concomitant]
     Active Substance: MELATONIN
  8. VITAMIN D NOS [Concomitant]
     Active Substance: VITAMIN D NOS
  9. vision supplements [Concomitant]

REACTIONS (3)
  - Fatigue [None]
  - Dizziness [None]
  - Fatigue [None]

NARRATIVE: CASE EVENT DATE: 20230302
